FAERS Safety Report 20561479 (Version 1)
Quarter: 2022Q1

REPORT INFORMATION
  Report Type: Spontaneous
  Country: US (occurrence: None)
  Receive Date: 20220307
  Receipt Date: 20220307
  Transmission Date: 20220423
  Serious: No
  Sender: FDA-Public Use
  Company Number: 2022A076282

PATIENT
  Age: 946 Month
  Weight: 73.9 kg

DRUGS (1)
  1. SYMBICORT [Suspect]
     Active Substance: BUDESONIDE\FORMOTEROL FUMARATE DIHYDRATE
     Indication: Asthma
     Dosage: 80/4.5 120 DOSE INHALER, UNKNOWN UNKNOWN
     Route: 055

REACTIONS (11)
  - Oral pain [Unknown]
  - Coating in mouth [Unknown]
  - Lip disorder [Unknown]
  - Nasal congestion [Unknown]
  - Wheezing [Unknown]
  - Lip disorder [Unknown]
  - Oropharyngeal pain [Unknown]
  - Lip swelling [Unknown]
  - Incorrect dose administered by device [Unknown]
  - Device malfunction [Unknown]
  - Device delivery system issue [Unknown]

NARRATIVE: CASE EVENT DATE: 20220101
